FAERS Safety Report 12067612 (Version 1)
Quarter: 2016Q1

REPORT INFORMATION
  Report Type: Spontaneous
  Country: US (occurrence: None)
  Receive Date: 20160210
  Receipt Date: 20160210
  Transmission Date: 20160526
  Serious: Yes (Hospitalization)
  Sender: FDA-Public Use
  Company Number: None

PATIENT
  Age: 67 Year
  Sex: Male
  Weight: 65 kg

DRUGS (1)
  1. MEMANTINE HYDROCHLORIDE [Suspect]
     Active Substance: MEMANTINE HYDROCHLORIDE
     Dates: end: 20160208

REACTIONS (4)
  - Nausea [None]
  - Dehydration [None]
  - Constipation [None]
  - Vomiting [None]

NARRATIVE: CASE EVENT DATE: 20160120
